FAERS Safety Report 14698949 (Version 27)
Quarter: 2021Q2

REPORT INFORMATION
  Report Type: Other
  Country: DE (occurrence: DE)
  Receive Date: 20180330
  Receipt Date: 20210422
  Transmission Date: 20210716
  Serious: Yes (Hospitalization, Disabling, Other)
  Sender: FDA-Public Use
  Company Number: DE-ROCHE-2096691

PATIENT
  Age: 50 Year
  Sex: Male
  Weight: 70.9 kg

DRUGS (16)
  1. OCREVUS [Suspect]
     Active Substance: OCRELIZUMAB
     Route: 042
     Dates: start: 20201013
  2. GABAPENTIN. [Concomitant]
     Active Substance: GABAPENTIN
     Indication: NEURALGIA
  3. CORTISONE [Concomitant]
     Active Substance: CORTISONE
     Route: 042
     Dates: start: 201911, end: 201911
  4. OCREVUS [Suspect]
     Active Substance: OCRELIZUMAB
     Route: 042
     Dates: start: 20190916
  5. OCREVUS [Suspect]
     Active Substance: OCRELIZUMAB
     Indication: PRIMARY PROGRESSIVE MULTIPLE SCLEROSIS
     Route: 042
     Dates: start: 20180226
  6. VALPROAT CHRONO [Concomitant]
     Active Substance: VALPROATE SODIUM
     Dosage: 1?0?1
     Route: 048
  7. DEKRISTOL [Concomitant]
     Active Substance: CHOLECALCIFEROL
  8. VALPROAT CHRONO [Concomitant]
     Active Substance: VALPROATE SODIUM
     Dosage: 1?0?1
  9. VALPROAT CHRONO [Concomitant]
     Active Substance: VALPROATE SODIUM
     Dosage: 1?0?1
     Route: 048
  10. GABAPENTIN. [Concomitant]
     Active Substance: GABAPENTIN
     Dosage: 1?0?1
     Route: 048
  11. CITALOPRAM [Concomitant]
     Active Substance: CITALOPRAM HYDROBROMIDE
     Indication: DEPRESSION
     Dosage: 1?0?0
     Route: 048
  12. SATIVEX [Concomitant]
     Active Substance: NABIXIMOLS
  13. OCREVUS [Suspect]
     Active Substance: OCRELIZUMAB
     Route: 042
     Dates: start: 20200415
  14. VALPROAT CHRONO [Concomitant]
     Active Substance: VALPROATE SODIUM
     Indication: EPILEPSY
     Dosage: 750?0?750 MG
  15. GABAPENTIN. [Concomitant]
     Active Substance: GABAPENTIN
     Dosage: 1?1?1
     Route: 048
  16. PREGABALIN. [Concomitant]
     Active Substance: PREGABALIN

REACTIONS (38)
  - Fatigue [Not Recovered/Not Resolved]
  - Apathy [Recovered/Resolved]
  - Chills [Recovered/Resolved]
  - Headache [Recovered/Resolved]
  - Depressed mood [Recovered/Resolved]
  - Withdrawal syndrome [Recovered/Resolved]
  - Pruritus [Recovered/Resolved]
  - Nasopharyngitis [Unknown]
  - Carotid arteriosclerosis [Unknown]
  - Back pain [Unknown]
  - Tremor [Recovering/Resolving]
  - Fall [Unknown]
  - Nausea [Recovered/Resolved]
  - Vomiting [Recovered/Resolved]
  - Herpes virus infection [Recovered/Resolved]
  - Head discomfort [Recovered/Resolved]
  - Haematoma [Recovered/Resolved]
  - Contusion [Recovered/Resolved]
  - Infection [Recovered/Resolved]
  - Eye pruritus [Recovered/Resolved]
  - Hypoaesthesia [Recovered/Resolved]
  - Muscular weakness [Recovered/Resolved]
  - Asthenia [Recovered/Resolved]
  - Blood iron decreased [Not Recovered/Not Resolved]
  - Bone contusion [Recovered/Resolved]
  - Gait disturbance [Recovered/Resolved]
  - Dizziness [Recovered/Resolved]
  - Thirst [Recovered/Resolved]
  - Increased appetite [Recovered/Resolved]
  - Epilepsy [Recovered/Resolved]
  - Pyrexia [Recovered/Resolved]
  - Mental impairment [Recovered/Resolved]
  - Hypoaesthesia [Recovered/Resolved]
  - Immunodeficiency [Recovered/Resolved]
  - Acute stress disorder [Recovered/Resolved]
  - Uhthoff^s phenomenon [Recovered/Resolved]
  - Dysaesthesia [Recovered/Resolved]
  - Gait disturbance [Recovered/Resolved]

NARRATIVE: CASE EVENT DATE: 20180226
